FAERS Safety Report 14580230 (Version 3)
Quarter: 2018Q2

REPORT INFORMATION
  Report Type: Report from Study
  Country: US (occurrence: US)
  Receive Date: 20180228
  Receipt Date: 20180504
  Transmission Date: 20180711
  Serious: Yes (Hospitalization, Other)
  Sender: FDA-Public Use
  Company Number: US-AMGEN-USASL2018025024

PATIENT
  Age: 64 Year
  Sex: Male

DRUGS (3)
  1. REPATHA [Suspect]
     Active Substance: EVOLOCUMAB
     Indication: BLOOD CHOLESTEROL INCREASED
     Dosage: 140 MG, Q2WK
     Route: 065
  2. REPATHA [Suspect]
     Active Substance: EVOLOCUMAB
     Indication: BLOOD CHOLESTEROL INCREASED
  3. REPATHA [Suspect]
     Active Substance: EVOLOCUMAB
     Indication: HYPERLIPIDAEMIA

REACTIONS (9)
  - Constipation [Unknown]
  - Muscle spasms [Unknown]
  - Swelling face [Unknown]
  - Lymphadenopathy [Unknown]
  - Glycosylated haemoglobin increased [Unknown]
  - Sinusitis [Unknown]
  - Nasopharyngitis [Unknown]
  - Influenza like illness [Unknown]
  - Flank pain [Unknown]
